FAERS Safety Report 14604842 (Version 1)
Quarter: 2018Q1

REPORT INFORMATION
  Report Type: Spontaneous
  Country: US (occurrence: US)
  Receive Date: 20180306
  Receipt Date: 20180306
  Transmission Date: 20180509
  Serious: No
  Sender: FDA-Public Use
  Company Number: None

PATIENT
  Age: 71 Year
  Sex: Male
  Weight: 85.5 kg

DRUGS (5)
  1. CIPROFLOXACIN HCL 500 MG [Suspect]
     Active Substance: CIPROFLOXACIN HYDROCHLORIDE
     Indication: URINARY TRACT INFECTION
     Dosage: ?          QUANTITY:14 CAPSULE(S);?
     Route: 048
     Dates: start: 20180212, end: 20180218
  2. ASPIRIN. [Concomitant]
     Active Substance: ASPIRIN
  3. SENIRO MULTIVITAMIN + MINERALS W/LUCIEN + LYCOPENE [Concomitant]
  4. AMIODIPINE BENAZEPRIL [Concomitant]
  5. CRESTOR [Concomitant]
     Active Substance: ROSUVASTATIN CALCIUM

REACTIONS (3)
  - Ocular hyperaemia [None]
  - Eye swelling [None]
  - Nasal congestion [None]

NARRATIVE: CASE EVENT DATE: 20180220
